FAERS Safety Report 4549937-3 (Version None)
Quarter: 2005Q1

REPORT INFORMATION
  Report Type: 
  Country: None (occurrence: None)
  Receive Date: 20050112
  Receipt Date: 20030128
  Transmission Date: 20050727
  Serious: Yes (Other)
  Sender: FDA-Public Use
  Company Number: PHEH2003US01152

PATIENT
  Age: 83 Year
  Sex: Male

DRUGS (1)
  1. GLEEVEC [Suspect]
     Indication: CHRONIC MYELOID LEUKAEMIA
     Dosage: 400 MG, QD
     Route: 048
     Dates: end: 20030205

REACTIONS (9)
  - ANAEMIA [None]
  - ASTHENIA [None]
  - BRONCHITIS [None]
  - CLOSTRIDIUM COLITIS [None]
  - DIARRHOEA [None]
  - DYSPNOEA EXERTIONAL [None]
  - FATIGUE [None]
  - HAEMATOCRIT DECREASED [None]
  - PULMONARY FUNCTION TEST DECREASED [None]
